FAERS Safety Report 5189483-X (Version None)
Quarter: 2006Q4

REPORT INFORMATION
  Report Type: 
  Country: None (occurrence: None)
  Receive Date: 20061221
  Receipt Date: 20050912
  Transmission Date: 20070319
  Serious: No
  Sender: FDA-Public Use
  Company Number: US-AMGEN-US149921

PATIENT
  Age: 55 Year
  Sex: Female

DRUGS (3)
  1. ENBREL [Suspect]
     Indication: PUSTULAR PSORIASIS
     Route: 058
     Dates: start: 20050101, end: 20050901
  2. ACTONEL [Concomitant]
     Route: 065
  3. CLOBETASOL PROPIONATE [Concomitant]
     Route: 065

REACTIONS (1)
  - ALOPECIA [None]
